FAERS Safety Report 17116568 (Version 1)
Quarter: 2019Q4

REPORT INFORMATION
  Report Type: Spontaneous
  Country: US (occurrence: US)
  Receive Date: 20191204
  Receipt Date: 20191204
  Transmission Date: 20200122
  Serious: Yes (Hospitalization)
  Sender: FDA-Public Use
  Company Number: None

PATIENT
  Age: 32 Year
  Sex: Female
  Weight: 95.25 kg

DRUGS (6)
  1. MAGNESIUM GLYCINATE [Concomitant]
     Active Substance: MAGNESIUM GLYCINATE
  2. VITAMIN B [Concomitant]
     Active Substance: VITAMIN B
  3. OMEGA 3 [Concomitant]
     Active Substance: OMEGA-3 FATTY ACIDS
  4. VITAMIN D [Concomitant]
     Active Substance: VITAMIN D NOS
  5. MIRENA [Suspect]
     Active Substance: LEVONORGESTREL
     Dates: start: 20160610, end: 20190903
  6. VITAMIN C [Concomitant]
     Active Substance: ASCORBIC ACID

REACTIONS (8)
  - Depression [None]
  - Malaise [None]
  - Insomnia [None]
  - Anxiety [None]
  - Tremor [None]
  - Neck pain [None]
  - Fatigue [None]
  - Nausea [None]

NARRATIVE: CASE EVENT DATE: 20190620
